FAERS Safety Report 5389738-X (Version None)
Quarter: 2007Q3

REPORT INFORMATION
  Report Type: 
  Country: None (occurrence: None)
  Receive Date: 20070717
  Receipt Date: 20070712
  Transmission Date: 20080115
  Serious: Yes (Death, Hospitalization)
  Sender: FDA-Public Use
  Company Number: PHHO2007DE01891

PATIENT
  Age: 60 Year
  Sex: Male
  Weight: 70 kg

DRUGS (4)
  1. SANDIMMUNE [Suspect]
     Indication: LIVER TRANSPLANT
     Dosage: 200 MG/DAILY
     Route: 048
     Dates: start: 20060906, end: 20070225
  2. METHYLPREDNISOLONE [Concomitant]
     Indication: LIVER TRANSPLANT
     Dosage: 8 MG/DAILY
     Route: 048
     Dates: start: 20060106
  3. METHYLPREDNISOLONE [Concomitant]
     Route: 048
     Dates: start: 20070225
  4. SANDIMMUNE [Suspect]
     Indication: LIVER TRANSPLANT
     Route: 042

REACTIONS (5)
  - ALANINE AMINOTRANSFERASE INCREASED [None]
  - ASPARTATE AMINOTRANSFERASE INCREASED [None]
  - NEUROENDOCRINE CARCINOMA [None]
  - RASH [None]
  - ULTRASOUND LIVER ABNORMAL [None]
